FAERS Safety Report 10173005 (Version 3)
Quarter: 2014Q3

REPORT INFORMATION
  Report Type: Report from Study
  Country: JP (occurrence: JP)
  Receive Date: 20140515
  Receipt Date: 20140820
  Transmission Date: 20150326
  Serious: Yes (Other)
  Sender: FDA-Public Use
  Company Number: PHHY2014JP057062

PATIENT
  Sex: Female

DRUGS (31)
  1. CLOZARIL [Suspect]
     Active Substance: CLOZAPINE
     Dosage: 250 MG, UNK
     Route: 048
     Dates: start: 20130723, end: 20130801
  2. CLOZARIL [Suspect]
     Active Substance: CLOZAPINE
     Dosage: 400 MG, UNK
     Route: 048
     Dates: start: 20130809, end: 20130815
  3. CLOZARIL [Suspect]
     Active Substance: CLOZAPINE
     Dosage: 300 MG, UNK
     Route: 048
     Dates: start: 20130820, end: 20130902
  4. CLOZARIL [Suspect]
     Active Substance: CLOZAPINE
     Dosage: 450 MG, UNK
     Route: 048
     Dates: start: 20131017, end: 20131024
  5. CLOZARIL [Suspect]
     Active Substance: CLOZAPINE
     Indication: SCHIZOPHRENIA, PARANOID TYPE
     Dosage: 12.5 MG, DAILY
     Route: 048
     Dates: start: 20130625, end: 20130625
  6. CLOZARIL [Suspect]
     Active Substance: CLOZAPINE
     Dosage: 200 MG, UNK
     Route: 048
     Dates: start: 20130720, end: 20130722
  7. CLOZARIL [Suspect]
     Active Substance: CLOZAPINE
     Dosage: 350 MG, UNK
     Route: 048
     Dates: start: 20130806, end: 20130808
  8. CLOZARIL [Suspect]
     Active Substance: CLOZAPINE
     Dosage: 350 MG, UNK
     Route: 048
     Dates: start: 20130816, end: 20130819
  9. CLOZARIL [Suspect]
     Active Substance: CLOZAPINE
     Dosage: 375 MG, UNK
     Route: 048
     Dates: start: 20131001, end: 20131003
  10. CLOZARIL [Suspect]
     Active Substance: CLOZAPINE
     Dosage: 475 MG, UNK
     Route: 048
     Dates: start: 20131025, end: 20131104
  11. CLOZARIL [Suspect]
     Active Substance: CLOZAPINE
     Dosage: 125 MG, UNK
     Route: 048
     Dates: start: 20130704, end: 20130708
  12. CLOZARIL [Suspect]
     Active Substance: CLOZAPINE
     Dosage: 400 MG, UNK
     Route: 048
     Dates: start: 20131004, end: 20131007
  13. CLOZARIL [Suspect]
     Active Substance: CLOZAPINE
     Dosage: 525 MG, UNK
     Route: 048
     Dates: start: 20131206, end: 20131214
  14. CLOZARIL [Suspect]
     Active Substance: CLOZAPINE
     Dosage: 500 MG, UNK
     Route: 048
     Dates: start: 20131215, end: 20131216
  15. QUETIAPINE [Concomitant]
     Active Substance: QUETIAPINE
     Dosage: 150 MG, UNK
     Route: 048
     Dates: start: 20130606
  16. QUETIAPINE [Concomitant]
     Active Substance: QUETIAPINE
     Dosage: 100 MG, UNK
     Route: 048
     Dates: end: 20130701
  17. CLOZARIL [Suspect]
     Active Substance: CLOZAPINE
     Dosage: 25 MG, UNK
     Route: 048
     Dates: start: 20130626, end: 20130626
  18. CLOZARIL [Suspect]
     Active Substance: CLOZAPINE
     Dosage: 150 MG, UNK
     Route: 048
     Dates: start: 20130709, end: 20130718
  19. CLOZARIL [Suspect]
     Active Substance: CLOZAPINE
     Dosage: 175 MG, UNK
     Route: 048
     Dates: start: 20130719, end: 20130719
  20. CLOZARIL [Suspect]
     Active Substance: CLOZAPINE
     Dosage: 350 MG, UNK
     Route: 048
     Dates: start: 20130903, end: 20130930
  21. CLOZARIL [Suspect]
     Active Substance: CLOZAPINE
     Dosage: 50 MG, UNK
     Route: 048
     Dates: start: 20130627, end: 20130701
  22. CLOZARIL [Suspect]
     Active Substance: CLOZAPINE
     Dosage: 100 MG, UNK
     Route: 048
     Dates: start: 20130702, end: 20130703
  23. CLOZARIL [Suspect]
     Active Substance: CLOZAPINE
     Dosage: 300 MG, UNK
     Route: 048
     Dates: start: 20130802, end: 20130805
  24. CLOZARIL [Suspect]
     Active Substance: CLOZAPINE
     Dosage: 525 MG, UNK
     Route: 048
     Dates: start: 20131115, end: 20131121
  25. CLOZARIL [Suspect]
     Active Substance: CLOZAPINE
     Dosage: 475 MG, UNK
     Route: 048
     Dates: start: 20131217, end: 20131219
  26. CLOZARIL [Suspect]
     Active Substance: CLOZAPINE
     Dosage: 450 MG, UNK
     Route: 048
     Dates: start: 20131220, end: 20131223
  27. CLOZARIL [Suspect]
     Active Substance: CLOZAPINE
     Dosage: 400 MG, UNK
     Dates: start: 20131224
  28. CLOZARIL [Suspect]
     Active Substance: CLOZAPINE
     Dosage: 425 MG, UNK
     Route: 048
     Dates: start: 20131008, end: 20131016
  29. CLOZARIL [Suspect]
     Active Substance: CLOZAPINE
     Dosage: 550 MG, UNK
     Route: 048
     Dates: start: 20131122, end: 20131205
  30. MAGNESIUM OXIDE. [Concomitant]
     Active Substance: MAGNESIUM OXIDE
     Indication: ANAEMIA
     Dosage: 3000 MG, UNK
     Dates: start: 20130611, end: 20130821
  31. CLOZARIL [Suspect]
     Active Substance: CLOZAPINE
     Dosage: 500 MG, UNK
     Route: 048
     Dates: start: 20131105, end: 20131114

REACTIONS (4)
  - Hepatic function abnormal [Not Recovered/Not Resolved]
  - Heart rate increased [Unknown]
  - White blood cell count increased [Unknown]
  - Haemoglobin decreased [Unknown]

NARRATIVE: CASE EVENT DATE: 20130816
